FAERS Safety Report 18418524 (Version 1)
Quarter: 2020Q4

REPORT INFORMATION
  Report Type: Spontaneous
  Country: CH (occurrence: CH)
  Receive Date: 20201023
  Receipt Date: 20201023
  Transmission Date: 20210114
  Serious: Yes (Hospitalization)
  Sender: FDA-Public Use
  Company Number: CH-HORIZON-VIM-0074-2020

PATIENT
  Age: 90 Year
  Sex: Male

DRUGS (13)
  1. LUCRIN [Suspect]
     Active Substance: LEUPROLIDE ACETATE
     Dosage: 11.25 MG 4 YEARS UNKNOWN
     Route: 058
     Dates: start: 20190528
  2. AZARGA [Concomitant]
     Active Substance: BRINZOLAMIDE\TIMOLOL MALEATE
  3. DAFALGAN [Concomitant]
     Active Substance: ACETAMINOPHEN
     Dosage: 3 SEPARATED DOSES
     Route: 048
     Dates: end: 20190724
  4. HALDOL [Concomitant]
     Active Substance: HALOPERIDOL
     Dosage: AS REQUIRED
     Dates: start: 20190724
  5. LAXOBERON [Concomitant]
     Active Substance: SODIUM PICOSULFATE
     Dates: start: 20190729
  6. IBUPROFEN. [Suspect]
     Active Substance: IBUPROFEN
     Route: 048
     Dates: start: 201905, end: 2019
  7. DAFALGAN [Concomitant]
     Active Substance: ACETAMINOPHEN
     Dosage: 1.0G AS REQUIRED
     Route: 048
     Dates: start: 20190724
  8. TRAVATAN [Concomitant]
     Active Substance: TRAVOPROST
  9. CLEXANE [Concomitant]
     Active Substance: ENOXAPARIN SODIUM
     Dates: start: 20190724
  10. BENERVA [Concomitant]
     Active Substance: THIAMINE HYDROCHLORIDE
     Dates: start: 20190724
  11. VIMOVO [Suspect]
     Active Substance: ESOMEPRAZOLE MAGNESIUM\NAPROXEN
     Indication: PRODUCT USED FOR UNKNOWN INDICATION
     Dosage: 20MG/500MG ONE DF DAILY
     Route: 048
     Dates: end: 20190724
  12. CASODEX [Suspect]
     Active Substance: BICALUTAMIDE
     Dosage: DAILY DOSE: 50 MG MILLIGRAM(S) EVERY DAY(S)
     Route: 048
     Dates: start: 20190515, end: 201906
  13. PLUS KALIUM [Concomitant]
     Active Substance: POTASSIUM CHLORIDE
     Dates: start: 20190727, end: 20190729

REACTIONS (1)
  - Confusional state [Recovered/Resolved]

NARRATIVE: CASE EVENT DATE: 20190723
